FAERS Safety Report 8912266 (Version 2)
Quarter: 2012Q4

REPORT INFORMATION
  Report Type: Spontaneous
  Country: US (occurrence: None)
  Receive Date: 20121113
  Receipt Date: 20121123
  Transmission Date: 20130627
  Serious: Yes (Other)
  Sender: FDA-Public Use
  Company Number: AUR-APL-2012-04826

PATIENT
  Age: 61 Year
  Sex: Male

DRUGS (15)
  1. MELOXICAM [Suspect]
     Indication: ARTHRITIS
     Dates: start: 2012
  2. LISINOPRIL [Suspect]
     Indication: HYPERTENSION
     Dosage: 1 D
  3. CHANTIX (VARENICLINE) [Suspect]
     Indication: SMOKING CESSATION THERAPY
     Route: 048
     Dates: end: 20121103
  4. CHANTIX (VARENICLINE) [Suspect]
     Indication: SMOKING CESSATION THERAPY
     Route: 048
     Dates: start: 2012, end: 2012
  5. CHANTIX (VARENICLINE) [Suspect]
     Indication: SMOKING CESSATION THERAPY
     Dosage: (1 MG, 2 IN 1 d)
     Route: 048
     Dates: start: 2012, end: 20121103
  6. CHANTIX (VARENICLINE) [Suspect]
     Indication: SMOKING CESSATION THERAPY
     Dates: start: 2012, end: 2012
  7. LEVOTHYROXINE [Suspect]
     Indication: HYPOTHYROIDISM
     Dosage: 1 D
  8. PREVACID [Suspect]
     Indication: GASTRIC DISORDER
  9. FENTANYL [Suspect]
     Indication: PAIN
     Dosage: or 50mmcg (2 in 1 D)
     Route: 062
     Dates: start: 2012
  10. FENTANYL [Suspect]
     Indication: PAIN
     Dosage: decrease to 75 mcg or 50 mcg (1D)
  11. OXYCONTIN [Suspect]
     Indication: PAIN
     Dosage: 10 mg (5 mg, 2 in 1 d)
  12. OXYCONTIN [Suspect]
     Indication: PAIN
  13. OXYCONTIN [Suspect]
     Indication: PAIN
  14. VALIUM [Suspect]
     Indication: ANXIETY
     Dosage: (as required)
  15. ULTRAM [Suspect]
     Indication: DRUG USE FOR UNKNOWN INDICATION

REACTIONS (15)
  - Chest pain [None]
  - Blood pressure increased [None]
  - Feeling abnormal [None]
  - Nausea [None]
  - Headache [None]
  - Somnolence [None]
  - Weight decreased [None]
  - Decreased appetite [None]
  - Stress [None]
  - Asthenia [None]
  - Abnormal behaviour [None]
  - Depressed mood [None]
  - Drug interaction [None]
  - Myocardial infarction [None]
  - Arthritis [None]
